FAERS Safety Report 6537837-9 (Version None)
Quarter: 2010Q1

REPORT INFORMATION
  Report Type: 
  Country: None (occurrence: None)
  Receive Date: 20100114
  Receipt Date: 20100105
  Transmission Date: 20100710
  Serious: Yes (Death, Other)
  Sender: FDA-Public Use
  Company Number: AT-AMGEN-QUU383245

PATIENT
  Sex: Female
  Weight: 76.2 kg

DRUGS (16)
  1. NEULASTA [Suspect]
     Indication: CHEMOTHERAPY
     Route: 058
     Dates: start: 20091111
  2. CYTOXAN [Concomitant]
  3. TREXALL [Concomitant]
  4. FLUOROURACIL [Concomitant]
  5. ARIMIDEX [Concomitant]
  6. FOSAMAX [Concomitant]
  7. PANTOPRAZOLE [Concomitant]
  8. CALCIUM WITH VITAMIN D [Concomitant]
  9. RIVASTIGIMINE [Concomitant]
  10. ACETYLCYSTEINE [Concomitant]
  11. INEGY [Concomitant]
  12. ACECOMB [Concomitant]
  13. DIAMICRON [Concomitant]
  14. TRAZODONE HCL [Concomitant]
  15. MADOPAR [Concomitant]
  16. REQUIP [Concomitant]

REACTIONS (3)
  - AGRANULOCYTOSIS [None]
  - DRUG INEFFECTIVE [None]
  - SEPSIS [None]
